FAERS Safety Report 23330787 (Version 1)
Quarter: 2023Q4

REPORT INFORMATION
  Report Type: Report from Study
  Country: DE (occurrence: DE)
  Receive Date: 20231222
  Receipt Date: 20231222
  Transmission Date: 20240109
  Serious: Yes (Other)
  Sender: FDA-Public Use
  Company Number: DE-002147023-NVSC2023DE270634

PATIENT
  Sex: Female

DRUGS (1)
  1. COSENTYX [Suspect]
     Active Substance: SECUKINUMAB
     Indication: Paternal exposure during pregnancy
     Dosage: EXPOSURE VIA PARTNER
     Route: 050

REACTIONS (2)
  - Abortion spontaneous [Unknown]
  - Maternal exposure via partner during pregnancy [Recovered/Resolved]

NARRATIVE: CASE EVENT DATE: 20220607
